FAERS Safety Report 10340070 (Version 1)
Quarter: 2014Q3

REPORT INFORMATION
  Report Type: Spontaneous
  Country: DE (occurrence: None)
  Receive Date: 20140722
  Receipt Date: 20140722
  Transmission Date: 20150326
  Serious: Yes (Congenital Anomaly, Other)
  Sender: FDA-Public Use
  Company Number: AUR-APL-2014-07696

PATIENT

DRUGS (2)
  1. FOLSAN (FOLIC ACID) [Concomitant]
  2. LAMOTRIGINE. [Suspect]
     Active Substance: LAMOTRIGINE
     Indication: BORDERLINE PERSONALITY DISORDER
     Route: 064
     Dates: start: 20140217, end: 20140331

REACTIONS (5)
  - Abdominal wall anomaly [None]
  - Umbilical cord short [None]
  - Congenital kyphoscoliosis [None]
  - Foetal exposure during pregnancy [None]
  - Exomphalos [None]
